FAERS Safety Report 25685566 (Version 3)
Quarter: 2025Q3

REPORT INFORMATION
  Report Type: Spontaneous
  Country: US (occurrence: US)
  Receive Date: 20250815
  Receipt Date: 20250919
  Transmission Date: 20251020
  Serious: Yes (Other)
  Sender: PFIZER
  Company Number: US-MLMSERVICE-20250806-PI603664-00101-1

PATIENT
  Age: 44 Year
  Sex: Female

DRUGS (9)
  1. BLEOMYCIN SULFATE [Suspect]
     Active Substance: BLEOMYCIN SULFATE
     Indication: Glioblastoma
  2. BLEOMYCIN SULFATE [Suspect]
     Active Substance: BLEOMYCIN SULFATE
     Indication: Ovarian germ cell tumour mixed
  3. BLEOMYCIN SULFATE [Suspect]
     Active Substance: BLEOMYCIN SULFATE
     Indication: Ovarian germ cell cancer stage III
  4. CISPLATIN [Suspect]
     Active Substance: CISPLATIN
     Indication: Glioblastoma
  5. CISPLATIN [Suspect]
     Active Substance: CISPLATIN
     Indication: Ovarian germ cell tumour mixed
  6. CISPLATIN [Suspect]
     Active Substance: CISPLATIN
     Indication: Ovarian germ cell cancer stage III
  7. ETOPOSIDE [Suspect]
     Active Substance: ETOPOSIDE
     Indication: Glioblastoma
  8. ETOPOSIDE [Suspect]
     Active Substance: ETOPOSIDE
     Indication: Ovarian germ cell tumour mixed
  9. ETOPOSIDE [Suspect]
     Active Substance: ETOPOSIDE
     Indication: Ovarian germ cell cancer stage III

REACTIONS (1)
  - Neutropenia [Recovering/Resolving]
